FAERS Safety Report 13435492 (Version 1)
Quarter: 2017Q2

REPORT INFORMATION
  Report Type: Other
  Country: US (occurrence: US)
  Receive Date: 20170413
  Receipt Date: 20170413
  Transmission Date: 20170830
  Serious: Yes (Death, Hospitalization, Other)
  Sender: FDA-Public Use
  Company Number: US-ACTELION-A-CH2017-151982

PATIENT
  Age: 32 Year
  Sex: Female

DRUGS (7)
  1. EPOPROSTENOL SODIUM. [Suspect]
     Active Substance: EPOPROSTENOL SODIUM
     Dosage: 32 NG/KG, PER MIN
     Route: 042
  2. TADALAFIL [Concomitant]
     Active Substance: TADALAFIL
     Indication: PULMONARY ARTERIAL HYPERTENSION
  3. EPOPROSTENOL SODIUM. [Suspect]
     Active Substance: EPOPROSTENOL SODIUM
     Dosage: UNK NG/KG, PER MIN
     Route: 042
  4. EPOPROSTENOL SODIUM. [Suspect]
     Active Substance: EPOPROSTENOL SODIUM
     Indication: PULMONARY ARTERIAL HYPERTENSION
     Dosage: 20 NG/KG, PER MIN
     Route: 042
  5. ENOXAPARIN [Concomitant]
     Active Substance: ENOXAPARIN
     Indication: PRODUCT USED FOR UNKNOWN INDICATION
     Dosage: 40 MG, QD
  6. FUROSEMIDE. [Concomitant]
     Active Substance: FUROSEMIDE
     Indication: PRODUCT USED FOR UNKNOWN INDICATION
     Dosage: UNK
  7. BETAMETHASONE. [Concomitant]
     Active Substance: BETAMETHASONE
     Indication: PRODUCT USED FOR UNKNOWN INDICATION

REACTIONS (30)
  - Therapeutic embolisation [Unknown]
  - Obstetrical procedure [Unknown]
  - Right ventricular dilatation [Unknown]
  - Retroplacental haematoma [Unknown]
  - Caesarean section [Unknown]
  - Exposure during pregnancy [Unknown]
  - Cardiac failure [Unknown]
  - Thrombocytopenia [Not Recovered/Not Resolved]
  - Premature baby [Unknown]
  - Respiratory failure [Unknown]
  - Lactic acidosis [Unknown]
  - Drug ineffective [Unknown]
  - Polyuria [Unknown]
  - Disease progression [Unknown]
  - Female sterilisation [Unknown]
  - Subarachnoid haemorrhage [Unknown]
  - Brain compression [Unknown]
  - Dyspnoea [Unknown]
  - Oedema [Unknown]
  - Pupil fixed [Unknown]
  - Muscular weakness [Unknown]
  - Postpartum haemorrhage [Recovered/Resolved]
  - Wound complication [Unknown]
  - Low cardiac output syndrome [Unknown]
  - Left ventricular failure [Unknown]
  - Withdrawal of life support [Fatal]
  - Platelet transfusion [Unknown]
  - Brain natriuretic peptide increased [Unknown]
  - Heart and lung transplant [Unknown]
  - Pulmonary arterial hypertension [Unknown]
